FAERS Safety Report 9445172 (Version 1)
Quarter: 2013Q3

REPORT INFORMATION
  Report Type: Spontaneous
  Country: US (occurrence: US)
  Receive Date: 20130807
  Receipt Date: 20130807
  Transmission Date: 20140515
  Serious: Yes (Other)
  Sender: FDA-Public Use
  Company Number: US-GLAXOSMITHKLINE-A1035725A

PATIENT
  Sex: Female

DRUGS (6)
  1. ADVAIR [Suspect]
     Indication: ASTHMA
     Dosage: 1PUFF TWICE PER DAY
     Route: 055
  2. ADVAIR [Suspect]
     Indication: ASTHMA
     Dosage: 2SPR TWICE PER DAY
     Route: 055
  3. ALBUTEROL [Suspect]
     Indication: ASTHMA
     Route: 055
  4. SINGULAIR [Concomitant]
  5. PRO-AIR [Concomitant]
  6. PRENATAL VITAMIN [Concomitant]

REACTIONS (11)
  - Pneumonia [Recovered/Resolved]
  - Loss of consciousness [Recovering/Resolving]
  - Nasopharyngitis [Recovering/Resolving]
  - Bronchitis [Recovering/Resolving]
  - Dysphonia [Recovering/Resolving]
  - Asthma [Recovering/Resolving]
  - Dyspnoea [Recovering/Resolving]
  - Peak expiratory flow rate decreased [Recovering/Resolving]
  - Stress [Recovering/Resolving]
  - Drug interaction [Unknown]
  - Drug ineffective [Unknown]
